FAERS Safety Report 19787625 (Version 2)
Quarter: 2023Q1

REPORT INFORMATION
  Report Type: Spontaneous
  Country: JP (occurrence: JP)
  Receive Date: 20210903
  Receipt Date: 20230222
  Transmission Date: 20230417
  Serious: Yes (Other)
  Sender: FDA-Public Use
  Company Number: JP-PFIZER INC-202101079953

PATIENT
  Sex: Male

DRUGS (2)
  1. RHEUMATREX [Suspect]
     Active Substance: METHOTREXATE SODIUM
     Indication: Rheumatoid arthritis
     Dosage: 2 DF, WEEKLY
     Route: 048
  2. ALINAMIN [PROSULTIAMINE] [Concomitant]
     Indication: Rheumatoid arthritis
     Dosage: UNK

REACTIONS (6)
  - Dental caries [Unknown]
  - Cough [Unknown]
  - Nasopharyngitis [Unknown]
  - Oropharyngeal discomfort [Unknown]
  - Feeling abnormal [Unknown]
  - Physical deconditioning [Unknown]
